FAERS Safety Report 6326035-X (Version None)
Quarter: 2009Q3

REPORT INFORMATION
  Report Type: 
  Country: None (occurrence: None)
  Receive Date: 20090824
  Receipt Date: 20090814
  Transmission Date: 20100115
  Serious: Yes (Life-Threatening)
  Sender: FDA-Public Use
  Company Number: AU-ABBOTT-09P-008-0591094-00

PATIENT
  Sex: Male
  Weight: 80 kg

DRUGS (3)
  1. HUMIRA [Suspect]
     Indication: RHEUMATOID ARTHRITIS
     Route: 058
     Dates: start: 20040201, end: 20090724
  2. ACETAMINOPHEN AND CODEINE PHOSPHATE [Concomitant]
     Indication: INSOMNIA
     Route: 048
     Dates: start: 20061201
  3. ACETAMINOPHEN AND CODEINE PHOSPHATE [Concomitant]
     Indication: RHEUMATOID ARTHRITIS

REACTIONS (2)
  - LARGE GRANULAR LYMPHOCYTOSIS [None]
  - SPLENOMEGALY [None]
